FAERS Safety Report 7999294-5 (Version None)
Quarter: 2011Q4

REPORT INFORMATION
  Report Type: 
  Country: None (occurrence: None)
  Receive Date: 20111221
  Receipt Date: 20111214
  Transmission Date: 20120403
  Serious: Yes (Hospitalization)
  Sender: FDA-Public Use
  Company Number: PHHY2011MX109861

PATIENT
  Sex: Female
  Weight: 40 kg

DRUGS (2)
  1. LEVETIRACETAM [Suspect]
     Dosage: 750 MG, UNK
  2. LEVETIRACETAM [Suspect]
     Indication: EPILEPSY
     Dosage: 1500 MG, DAILY DOSE
     Route: 048
     Dates: start: 20111114

REACTIONS (8)
  - ABDOMINAL PAIN UPPER [None]
  - CONSTIPATION [None]
  - CRYING [None]
  - FATIGUE [None]
  - WEIGHT DECREASED [None]
  - SYNCOPE [None]
  - DEPRESSION [None]
  - HEADACHE [None]
